FAERS Safety Report 11909219 (Version 1)
Quarter: 2016Q1

REPORT INFORMATION
  Report Type: Spontaneous
  Country: US (occurrence: US)
  Receive Date: 20160112
  Receipt Date: 20160112
  Transmission Date: 20160526
  Serious: Yes (Other)
  Sender: FDA-Public Use
  Company Number: US-BEH-2015054450

PATIENT
  Sex: Female
  Weight: 99 kg

DRUGS (7)
  1. EPIPEN [Concomitant]
     Active Substance: EPINEPHRINE
     Indication: ANAPHYLACTIC REACTION
  2. ATENOLOL. [Concomitant]
     Active Substance: ATENOLOL
  3. HIZENTRA [Suspect]
     Active Substance: HUMAN IMMUNOGLOBULIN G
     Indication: IMMUNODEFICIENCY COMMON VARIABLE
     Route: 058
  4. LMX [Concomitant]
     Active Substance: LIDOCAINE
  5. DIPHENHYDRAMINE. [Concomitant]
     Active Substance: DIPHENHYDRAMINE
     Indication: ANAPHYLACTIC REACTION
  6. IBUPROFEN. [Concomitant]
     Active Substance: IBUPROFEN
  7. SUMATRIPTAN. [Concomitant]
     Active Substance: SUMATRIPTAN

REACTIONS (5)
  - Venous injury [Unknown]
  - Administration site haemorrhage [Unknown]
  - Administration site discolouration [Unknown]
  - Administration site induration [Unknown]
  - Wrong technique in product usage process [Unknown]
